FAERS Safety Report 8109228 (Version 3)
Quarter: 2013Q4

REPORT INFORMATION
  Report Type: Spontaneous
  Country: US (occurrence: US)
  Receive Date: 20110826
  Receipt Date: 20131127
  Transmission Date: 20140711
  Serious: Yes (Hospitalization, Other)
  Sender: FDA-Public Use
  Company Number: US-BAYER-2011-075346

PATIENT
  Age: 23 Year
  Sex: Female
  Weight: 70.3 kg

DRUGS (3)
  1. YAZ [Suspect]
     Dosage: UNK
     Dates: start: 200908
  2. YASMIN [Suspect]
     Dosage: UNK
     Dates: start: 200908
  3. PHENTERMINE [Concomitant]
     Indication: WEIGHT DECREASED
     Dosage: UNK
     Dates: start: 2000, end: 2010

REACTIONS (4)
  - Gallbladder injury [None]
  - Injury [None]
  - Pain [None]
  - Cholecystitis [None]
